FAERS Safety Report 5430967-4 (Version None)
Quarter: 2007Q3

REPORT INFORMATION
  Report Type: 
  Country: None (occurrence: None)
  Receive Date: 20070830
  Receipt Date: 20070823
  Transmission Date: 20080115
  Serious: Yes (Other)
  Sender: FDA-Public Use
  Company Number: A0674731A

PATIENT
  Age: 13 Year
  Sex: Male

DRUGS (5)
  1. LAMICTAL [Suspect]
     Indication: BIPOLAR DISORDER
     Route: 048
  2. LITHIUM CARBONATE [Concomitant]
  3. CONCERTA [Concomitant]
  4. PREVACID [Concomitant]
  5. GEODON [Concomitant]

REACTIONS (9)
  - ERYTHEMA [None]
  - HEADACHE [None]
  - HEPATIC ENZYME INCREASED [None]
  - RASH [None]
  - SKIN STRIAE [None]
  - STEVENS-JOHNSON SYNDROME [None]
  - THIRST [None]
  - WEIGHT DECREASED [None]
  - WEIGHT INCREASED [None]
